FAERS Safety Report 17322851 (Version 2)
Quarter: 2020Q4

REPORT INFORMATION
  Report Type: Other
  Country: US (occurrence: US)
  Receive Date: 20200127
  Receipt Date: 20201231
  Transmission Date: 20210113
  Serious: Yes (Other)
  Sender: FDA-Public Use
  Company Number: US-ROCHE-2527401

PATIENT
  Sex: Female
  Weight: 88.08 kg

DRUGS (9)
  1. OCREVUS [Suspect]
     Active Substance: OCRELIZUMAB
     Indication: NEURALGIA
  2. AUBAGIO [Concomitant]
     Active Substance: TERIFLUNOMIDE
  3. OCREVUS [Suspect]
     Active Substance: OCRELIZUMAB
     Indication: MULTIPLE SCLEROSIS
     Route: 065
  4. OCREVUS [Suspect]
     Active Substance: OCRELIZUMAB
     Indication: COGNITIVE DISORDER
  5. OCREVUS [Suspect]
     Active Substance: OCRELIZUMAB
     Indication: GAIT DISTURBANCE
  6. MODAFINIL. [Concomitant]
     Active Substance: MODAFINIL
     Dosage: ONGOING:NO
  7. MODAFINIL. [Concomitant]
     Active Substance: MODAFINIL
  8. BETASERON [Concomitant]
     Active Substance: INTERFERON BETA-1B
  9. PROZAC [Concomitant]
     Active Substance: FLUOXETINE HYDROCHLORIDE

REACTIONS (20)
  - Joint stiffness [Unknown]
  - Tremor [Unknown]
  - Back pain [Unknown]
  - Drug ineffective [Unknown]
  - Pain in extremity [Unknown]
  - Nocturia [Unknown]
  - Weight increased [Unknown]
  - Dizziness [Unknown]
  - Nausea [Unknown]
  - Amnesia [Unknown]
  - Tinnitus [Unknown]
  - Asthenia [Unknown]
  - Photophobia [Unknown]
  - Influenza [Unknown]
  - Vertigo [Unknown]
  - Confusional state [Unknown]
  - Constipation [Unknown]
  - Balance disorder [Unknown]
  - Urinary tract infection [Unknown]
  - Paraesthesia [Unknown]
